FAERS Safety Report 24112934 (Version 4)
Quarter: 2024Q4

REPORT INFORMATION
  Report Type: Report from Study
  Country: US (occurrence: US)
  Receive Date: 20240719
  Receipt Date: 20241009
  Transmission Date: 20250114
  Serious: Yes (Other)
  Sender: TAIHO ONCOLOGY INC
  Company Number: US-TAIHOP-2024-003718

PATIENT
  Age: 56 Year
  Sex: Female
  Weight: 46.99 kg

DRUGS (16)
  1. LONSURF [Suspect]
     Active Substance: TIPIRACIL HYDROCHLORIDE\TRIFLURIDINE
     Indication: Rectal cancer
     Dosage: FORM STRENGTH: 15MG AND 20MG.?CYCLE 1
     Route: 048
     Dates: start: 20240327
  2. FENTANYL [Concomitant]
     Active Substance: FENTANYL
     Indication: Product used for unknown indication
     Dosage: 25MCG/HR.
     Route: 062
  3. LOMOTIL [Concomitant]
     Active Substance: ATROPINE SULFATE\DIPHENOXYLATE HYDROCHLORIDE
     Indication: Diarrhoea
     Dosage: 2.5-0.025 MG?AS NEEDED
     Route: 048
  4. OMEPRAZOLE [Concomitant]
     Active Substance: OMEPRAZOLE
     Indication: Product used for unknown indication
     Dosage: DELAYED RELEASE(DR/EC)
     Route: 048
  5. ONDANSETRON [Concomitant]
     Active Substance: ONDANSETRON
     Indication: Nausea
     Dosage: AS NEEDED
     Route: 048
  6. ONDANSETRON [Concomitant]
     Active Substance: ONDANSETRON
     Indication: Vomiting
  7. PERCOCET [Concomitant]
     Active Substance: ACETAMINOPHEN\OXYCODONE HYDROCHLORIDE
     Indication: Product used for unknown indication
     Dosage: 7.5- 325.
  8. PIQRAY [Concomitant]
     Active Substance: ALPELISIB
     Indication: Product used for unknown indication
  9. PROCHLORPER [Concomitant]
     Indication: Product used for unknown indication
  10. PROMETHAZINE [Concomitant]
     Active Substance: PROMETHAZINE HYDROCHLORIDE
     Indication: Nausea
     Dosage: AS NEEDED
     Route: 048
  11. PROMETHAZINE [Concomitant]
     Active Substance: PROMETHAZINE HYDROCHLORIDE
     Indication: Vomiting
  12. PROZAC [Concomitant]
     Active Substance: FLUOXETINE HYDROCHLORIDE
     Indication: Product used for unknown indication
     Route: 048
  13. TRAMADOL HCL [Concomitant]
     Active Substance: TRAMADOL HYDROCHLORIDE
     Indication: Product used for unknown indication
  14. VITAMINS [Concomitant]
     Active Substance: VITAMINS
     Indication: Product used for unknown indication
     Route: 048
  15. COMPAZINE [Concomitant]
     Active Substance: PROCHLORPERAZINE MALEATE
     Indication: Nausea
     Dosage: AS NEEDED
     Route: 048
  16. NALOXONE [Concomitant]
     Active Substance: NALOXONE
     Indication: Product used for unknown indication
     Dosage: 4 MG/ACTUATION SPRAY, NON-AEROSOL 1 SPRAY INTRANASALLY ONCE. USE 1 SPRAY IN ONE NOSTRIL. MAY REPEAT
     Route: 045

REACTIONS (12)
  - Loss of consciousness [Not Recovered/Not Resolved]
  - Anaemia [Unknown]
  - Bronchitis [Unknown]
  - Fatigue [Not Recovered/Not Resolved]
  - Product communication issue [Not Recovered/Not Resolved]
  - Product dose omission in error [Not Recovered/Not Resolved]
  - Incorrect dose administered [Not Recovered/Not Resolved]
  - Headache [Not Recovered/Not Resolved]
  - Cough [Not Recovered/Not Resolved]
  - Decreased appetite [Unknown]
  - Diarrhoea [Not Recovered/Not Resolved]
  - Treatment noncompliance [Unknown]
